FAERS Safety Report 5478006-3 (Version None)
Quarter: 2007Q4

REPORT INFORMATION
  Report Type: 
  Country: None (occurrence: None)
  Receive Date: 20071005
  Receipt Date: 20070928
  Transmission Date: 20080405
  Serious: Yes (Other)
  Sender: FDA-Public Use
  Company Number: GB-BAYER-200711046BNE

PATIENT
  Age: 72 Year
  Sex: Female

DRUGS (2)
  1. ACETYLSALICYLIC ACID [Suspect]
     Dosage: TOTAL DAILY DOSE: 75 MG
  2. TILDIEM [Suspect]
     Dosage: TOTAL DAILY DOSE: 240 MG
     Route: 048

REACTIONS (1)
  - ATRIAL FIBRILLATION [None]
